FAERS Safety Report 7518151-1 (Version None)
Quarter: 2011Q2

REPORT INFORMATION
  Report Type: 
  Country: None (occurrence: None)
  Receive Date: 20110523
  Receipt Date: 20110509
  Transmission Date: 20111010
  Serious: Yes (Life-Threatening, Hospitalization, Other)
  Sender: FDA-Public Use
  Company Number: 2011MA005608

PATIENT
  Age: 23 Year
  Sex: Female

DRUGS (1)
  1. FEVERALL [Suspect]
     Dosage: 24 G, 1X, PO
     Route: 054

REACTIONS (15)
  - BLOOD GLUCOSE INCREASED [None]
  - ASPARTATE AMINOTRANSFERASE INCREASED [None]
  - INTERNATIONAL NORMALISED RATIO DECREASED [None]
  - CONTINUOUS HAEMODIAFILTRATION [None]
  - UNRESPONSIVE TO STIMULI [None]
  - HYPOTENSION [None]
  - OVERDOSE [None]
  - CONFUSIONAL STATE [None]
  - NYSTAGMUS [None]
  - MYDRIASIS [None]
  - MENTAL STATUS CHANGES [None]
  - COMA [None]
  - BODY TEMPERATURE DECREASED [None]
  - METABOLIC ACIDOSIS [None]
  - ALANINE AMINOTRANSFERASE INCREASED [None]
